FAERS Safety Report 7795838-7 (Version None)
Quarter: 2011Q4

REPORT INFORMATION
  Report Type: 
  Country: None (occurrence: None)
  Receive Date: 20111004
  Receipt Date: 20110926
  Transmission Date: 20120403
  Serious: Yes (Hospitalization, Other)
  Sender: FDA-Public Use
  Company Number: PHHY2011IN85268

PATIENT
  Age: 3 Year
  Sex: Male

DRUGS (1)
  1. VALPROIC ACID [Suspect]
     Indication: CONVULSION
     Dosage: 20 MG/KG, UNK
     Route: 048

REACTIONS (11)
  - HYPERAMMONAEMIC ENCEPHALOPATHY [None]
  - HYPERREFLEXIA [None]
  - INTERNATIONAL NORMALISED RATIO INCREASED [None]
  - COMA [None]
  - HYPOGLYCAEMIA [None]
  - GRAND MAL CONVULSION [None]
  - DRUG LEVEL INCREASED [None]
  - HEPATOMEGALY [None]
  - BASAL GANGLIA HAEMORRHAGE [None]
  - LOSS OF CONSCIOUSNESS [None]
  - HEPATIC ENZYME ABNORMAL [None]
